FAERS Safety Report 8150729 (Version 2)
Quarter: 2015Q2

REPORT INFORMATION
  Report Type: Report from Study
  Country: US (occurrence: US)
  Receive Date: 20110922
  Receipt Date: 20150604
  Transmission Date: 20150821
  Serious: Yes (Hospitalization, Other)
  Sender: FDA-Public Use
  Company Number: US-ASTRAZENECA-2010SE41296

PATIENT
  Age: 63 Year
  Sex: Male
  Weight: 93 kg

DRUGS (27)
  1. SIMVASTATIN. [Concomitant]
     Active Substance: SIMVASTATIN
  2. ISOSORBIDE [Concomitant]
     Active Substance: ISOSORBIDE
  3. TRAMADOL [Concomitant]
     Active Substance: TRAMADOL
  4. SEROQUEL [Suspect]
     Active Substance: QUETIAPINE FUMARATE
     Indication: BIPOLAR DISORDER
     Route: 048
  5. METOPROLOL-UNSPECIFIED [Suspect]
     Active Substance: METOPROLOL
     Route: 065
  6. DEPAKOTE [Concomitant]
     Active Substance: DIVALPROEX SODIUM
  7. ATIVAN [Concomitant]
     Active Substance: LORAZEPAM
  8. ALLOPURINOL. [Concomitant]
     Active Substance: ALLOPURINOL
  9. SEROQUEL [Suspect]
     Active Substance: QUETIAPINE FUMARATE
     Indication: BIPOLAR DISORDER
     Route: 048
  10. VENTOLIN HFA [Suspect]
     Active Substance: ALBUTEROL SULFATE
     Indication: PRODUCT USED FOR UNKNOWN INDICATION
     Dosage: UNK
     Route: 065
  11. SEROQUEL [Suspect]
     Active Substance: QUETIAPINE FUMARATE
     Indication: BIPOLAR DISORDER
     Route: 048
  12. LEVOXYL [Concomitant]
     Active Substance: LEVOTHYROXINE SODIUM
  13. TRAVATAN [Concomitant]
     Active Substance: TRAVOPROST
  14. HYDROCODONE [Concomitant]
     Active Substance: HYDROCODONE
  15. POTASSIUM [Concomitant]
     Active Substance: POTASSIUM
  16. COUMADIN [Concomitant]
     Active Substance: WARFARIN SODIUM
  17. VITAMIN D [Concomitant]
     Active Substance: CHOLECALCIFEROL
  18. WARFARIN [Concomitant]
     Active Substance: WARFARIN
  19. CARDIZEM [Concomitant]
     Active Substance: DILTIAZEM HYDROCHLORIDE
  20. LASIX [Concomitant]
     Active Substance: FUROSEMIDE
  21. FISH OIL [Concomitant]
     Active Substance: FISH OIL
  22. DILITIAZEM ER [Concomitant]
  23. VENTOLIN HFA [Suspect]
     Active Substance: ALBUTEROL SULFATE
     Indication: PRODUCT USED FOR UNKNOWN INDICATION
     Dosage: 2 PUFFS TWO TIMES A DAY
     Route: 065
     Dates: start: 2012
  24. OMEPRAZOLE. [Concomitant]
     Active Substance: OMEPRAZOLE
  25. BABY ASPIRIN [Concomitant]
     Active Substance: ASPIRIN
  26. BUSPAR [Concomitant]
     Active Substance: BUSPIRONE HYDROCHLORIDE
  27. VITAMIN B12 [Concomitant]
     Active Substance: CYANOCOBALAMIN

REACTIONS (16)
  - Chest discomfort [Unknown]
  - Blood glucose increased [Unknown]
  - Tachycardia [Unknown]
  - Tonsillitis [Unknown]
  - Nasopharyngitis [Recovering/Resolving]
  - Bronchitis [Recovering/Resolving]
  - Productive cough [None]
  - Wheezing [Unknown]
  - Treatment noncompliance [None]
  - Expired product administered [None]
  - Incorrect dose administered [Unknown]
  - Pneumonia [Recovering/Resolving]
  - Diabetes mellitus [Not Recovered/Not Resolved]
  - Oropharyngeal pain [Unknown]
  - Sputum discoloured [Unknown]
  - Somnolence [Unknown]

NARRATIVE: CASE EVENT DATE: 2013
